FAERS Safety Report 5107279-1 (Version None)
Quarter: 2006Q3

REPORT INFORMATION
  Report Type: 
  Country: None (occurrence: None)
  Receive Date: 20060913
  Receipt Date: 20060904
  Transmission Date: 20061208
  Serious: Yes (Hospitalization)
  Sender: FDA-Public Use
  Company Number: GXKR2006DE05487

PATIENT
  Sex: Male

DRUGS (1)
  1. METOHEXAL SUCC (NGX) (METOPROLOL) TABLET, 47.5 MG [Suspect]
     Indication: DRUG USE FOR UNKNOWN INDICATION
     Dosage: 47.5 MG, ORAL
     Route: 048
     Dates: start: 20050101, end: 20060107

REACTIONS (7)
  - FATIGUE [None]
  - HYPOTONIA [None]
  - NAUSEA [None]
  - OEDEMA [None]
  - PERIPHERAL COLDNESS [None]
  - SYNCOPE [None]
  - VOMITING [None]
